FAERS Safety Report 8415595-0 (Version None)
Quarter: 2012Q2

REPORT INFORMATION
  Report Type: 
  Country: None (occurrence: None)
  Receive Date: 20120606
  Receipt Date: 20120529
  Transmission Date: 20120825
  Serious: Yes (Hospitalization, Congenital Anomaly)
  Sender: FDA-Public Use
  Company Number: US-JNJFOC-20120410487

PATIENT
  Sex: Male

DRUGS (17)
  1. ACETAMINOPHEN [Suspect]
     Indication: FOETAL EXPOSURE DURING PREGNANCY
     Route: 064
  2. CRESTOR [Suspect]
     Indication: FOETAL EXPOSURE DURING PREGNANCY
     Route: 064
  3. FELDENE [Suspect]
     Indication: FOETAL EXPOSURE DURING PREGNANCY
     Route: 064
  4. TOPAMAX [Suspect]
     Indication: FOETAL EXPOSURE DURING PREGNANCY
     Route: 064
  5. OXYCODONE/ACETAMINOPHEN [Suspect]
     Indication: FOETAL EXPOSURE DURING PREGNANCY
     Route: 064
  6. VITAMIN AND MINERAL PRENATAL SUPPLEMENT W/ FOLIC ACID CAP [Concomitant]
     Route: 064
  7. ACETAMINOPHEN [Suspect]
     Route: 064
  8. SELECTIVE SEROTONIN REUPTAKE INHIBITOR [Suspect]
     Indication: FOETAL EXPOSURE DURING PREGNANCY
     Route: 064
  9. OVCON-35 [Suspect]
     Indication: FOETAL EXPOSURE DURING PREGNANCY
     Route: 064
  10. OXYCONTIN [Suspect]
     Indication: FOETAL EXPOSURE DURING PREGNANCY
     Route: 064
  11. VICODIN [Suspect]
     Indication: FOETAL EXPOSURE DURING PREGNANCY
     Route: 064
  12. FOLIC ACID [Concomitant]
     Route: 064
  13. ULTRAM [Suspect]
     Indication: FOETAL EXPOSURE DURING PREGNANCY
     Route: 064
  14. SOMA [Suspect]
     Indication: FOETAL EXPOSURE DURING PREGNANCY
     Route: 064
  15. NYSTATIN [Suspect]
     Indication: FOETAL EXPOSURE DURING PREGNANCY
     Route: 064
  16. EFFEXOR [Suspect]
     Indication: FOETAL EXPOSURE DURING PREGNANCY
     Route: 064
  17. FISH OIL [Concomitant]
     Route: 064

REACTIONS (7)
  - TORTICOLLIS [None]
  - CLEFT LIP AND PALATE [None]
  - HYDROCELE [None]
  - FEEDING DISORDER [None]
  - CRANIOSYNOSTOSIS [None]
  - DUANE'S SYNDROME [None]
  - DEVELOPMENTAL DELAY [None]
